FAERS Safety Report 16595503 (Version 1)
Quarter: 2019Q3

REPORT INFORMATION
  Report Type: Spontaneous
  Country: US (occurrence: US)
  Receive Date: 20190719
  Receipt Date: 20190719
  Transmission Date: 20191004
  Serious: No
  Sender: FDA-Public Use
  Company Number: US-009507513-1906USA008231

PATIENT
  Age: 70 Year
  Sex: Male

DRUGS (2)
  1. CEFTOLOZANE SULFATE  (+) TAZOBACTAM SODIUM [Suspect]
     Active Substance: CEFTOLOZANE SULFATE\TAZOBACTAM SODIUM
     Indication: PSEUDOMONAS INFECTION
     Dosage: 3G IV EVERY 8 HOURS OVER 1 HOUR
     Route: 042
  2. CEFTOLOZANE SULFATE  (+) TAZOBACTAM SODIUM [Suspect]
     Active Substance: CEFTOLOZANE SULFATE\TAZOBACTAM SODIUM
     Indication: MEDICAL DEVICE SITE INFECTION
     Dosage: 6G IV OVER 24 HOURS
     Route: 042

REACTIONS (1)
  - Product use in unapproved indication [Unknown]
